FAERS Safety Report 6744496-9 (Version None)
Quarter: 2010Q2

REPORT INFORMATION
  Report Type: 
  Country: None (occurrence: None)
  Receive Date: 20100527
  Receipt Date: 20100517
  Transmission Date: 20101027
  Serious: Yes (Hospitalization)
  Sender: FDA-Public Use
  Company Number: FR-PFIZER INC-2009220570

PATIENT
  Age: 71 Year
  Sex: Male
  Weight: 80 kg

DRUGS (1)
  1. SUTENT [Suspect]
     Indication: PROSTATE CANCER
     Dosage: 25 MG, 1X/DAY
     Route: 048
     Dates: start: 20080625, end: 20090810

REACTIONS (3)
  - ANAL ABSCESS [None]
  - CYSTITIS [None]
  - HAEMATURIA [None]
